FAERS Safety Report 13951814 (Version 1)
Quarter: 2017Q3

REPORT INFORMATION
  Report Type: Report from Study
  Country: US (occurrence: US)
  Receive Date: 20170908
  Receipt Date: 20170908
  Transmission Date: 20171128
  Serious: Yes (Other)
  Sender: FDA-Public Use
  Company Number: US-GILEAD-2017-0284901

PATIENT
  Age: 63 Year
  Sex: Female

DRUGS (1)
  1. LEDIPASVIR/SOFOSBUVIR [Suspect]
     Active Substance: LEDIPASVIR\SOFOSBUVIR
     Indication: CHRONIC HEPATITIS C
     Dosage: 1 DF, QD
     Route: 048
     Dates: start: 20170405, end: 20170704

REACTIONS (10)
  - Fatigue [Unknown]
  - Cataract [Unknown]
  - Peripheral swelling [Unknown]
  - Blood pressure increased [Unknown]
  - Memory impairment [Not Recovered/Not Resolved]
  - Hypersomnia [Not Recovered/Not Resolved]
  - Headache [Unknown]
  - Pyrexia [Unknown]
  - Asthenia [Unknown]
  - Chromaturia [Unknown]

NARRATIVE: CASE EVENT DATE: 2017
